FAERS Safety Report 4650791-X (Version None)
Quarter: 2005Q2

REPORT INFORMATION
  Report Type: 
  Country: None (occurrence: None)
  Receive Date: 20050503
  Receipt Date: 20050428
  Transmission Date: 20051028
  Serious: Yes (Hospitalization)
  Sender: FDA-Public Use
  Company Number: 20050403136

PATIENT
  Age: 16 Month
  Sex: Female
  Weight: 10.9 kg

DRUGS (1)
  1. AMOXICILLIN AND CLAVULANATE POTASSIUM [Suspect]
     Indication: OTITIS MEDIA ACUTE
     Route: 048
     Dates: start: 20050318, end: 20050327

REACTIONS (7)
  - ABDOMINAL PAIN [None]
  - APPENDICITIS [None]
  - BODY TEMPERATURE [None]
  - DIARRHOEA [None]
  - GASTROENTERITIS ROTAVIRUS [None]
  - INTUSSUSCEPTION [None]
  - VOMITING [None]
